FAERS Safety Report 10357253 (Version 1)
Quarter: 2014Q3

REPORT INFORMATION
  Report Type: Spontaneous
  Country: CO (occurrence: CO)
  Receive Date: 20140801
  Receipt Date: 20140801
  Transmission Date: 20150326
  Serious: Yes (Hospitalization)
  Sender: FDA-Public Use
  Company Number: PHHY2014CO092312

PATIENT
  Age: 65 Year
  Sex: Male

DRUGS (2)
  1. VALPROIC ACID. [Suspect]
     Active Substance: VALPROIC ACID
  2. PHENYTOIN. [Suspect]
     Active Substance: PHENYTOIN
     Indication: INJURY

REACTIONS (18)
  - Eosinophil count increased [Recovered/Resolved]
  - Leukocytosis [Recovered/Resolved]
  - Sepsis [Recovered/Resolved]
  - Renal impairment [Recovered/Resolved]
  - Respiratory rate increased [Recovered/Resolved]
  - Heart rate increased [Recovered/Resolved]
  - Dermatitis exfoliative [Recovered/Resolved]
  - Respiratory failure [Recovered/Resolved]
  - Liver function test abnormal [Recovered/Resolved]
  - Generalised oedema [Recovered/Resolved]
  - Condition aggravated [Recovered/Resolved]
  - Malnutrition [Recovered/Resolved]
  - Hypotension [Recovered/Resolved]
  - Oliguria [Recovered/Resolved]
  - Rash [Unknown]
  - Rash generalised [Recovered/Resolved]
  - Drug reaction with eosinophilia and systemic symptoms [Recovered/Resolved]
  - Pyrexia [Recovered/Resolved]
